FAERS Safety Report 16922640 (Version 2)
Quarter: 2019Q4

REPORT INFORMATION
  Report Type: Spontaneous
  Country: IT (occurrence: IT)
  Receive Date: 20191016
  Receipt Date: 20191022
  Transmission Date: 20200122
  Serious: No
  Sender: FDA-Public Use
  Company Number: IT-BEH-2019108167

PATIENT
  Age: 44 Year
  Sex: Female

DRUGS (2)
  1. PRIVIGEN [Suspect]
     Active Substance: HUMAN IMMUNOGLOBULIN G
     Dosage: UNK
     Route: 042
     Dates: start: 20190918, end: 20190920
  2. PRIVIGEN [Suspect]
     Active Substance: HUMAN IMMUNOGLOBULIN G
     Indication: NEUROPATHY PERIPHERAL
     Dosage: UNK
     Route: 042
     Dates: start: 20190820, end: 20190822

REACTIONS (6)
  - Pain [Recovered/Resolved with Sequelae]
  - Urticaria [Not Recovered/Not Resolved]
  - Pruritus [Recovered/Resolved with Sequelae]
  - Pruritus [Not Recovered/Not Resolved]
  - No adverse event [Unknown]
  - Product use in unapproved indication [Unknown]

NARRATIVE: CASE EVENT DATE: 20190820
